FAERS Safety Report 10065662 (Version 2)
Quarter: 2014Q2

REPORT INFORMATION
  Report Type: Spontaneous
  Country: US (occurrence: US)
  Receive Date: 20140408
  Receipt Date: 20140429
  Transmission Date: 20141212
  Serious: No
  Sender: FDA-Public Use
  Company Number: US-PFIZER INC-2014096164

PATIENT
  Age: 85 Year
  Sex: Male
  Weight: 92.52 kg

DRUGS (4)
  1. AMOXICILLIN [Suspect]
     Indication: SINUSITIS
     Dosage: UNK
  2. AMOXICILLIN [Suspect]
     Indication: LUNG INFECTION
  3. DOXYCYCLINE HYCLATE [Suspect]
     Indication: SINUSITIS
     Dosage: UNK
  4. DOXYCYCLINE HYCLATE [Suspect]
     Indication: LUNG INFECTION

REACTIONS (1)
  - Drug ineffective [Unknown]
